FAERS Safety Report 8581658-2 (Version None)
Quarter: 2012Q3

REPORT INFORMATION
  Report Type: 
  Country: None (occurrence: None)
  Receive Date: 20120801
  Receipt Date: 20120801
  Transmission Date: 20120928
  Serious: Yes (Other)
  Sender: FDA-Public Use
  Company Number: None

PATIENT
  Age: 87 Year
  Sex: Male

DRUGS (12)
  1. LEVOFLOXACIN [Suspect]
     Indication: LUNG INFECTION
     Dosage: 500 MG ONCE A DAY PO
     Route: 048
     Dates: start: 20120509, end: 20120519
  2. TRAMADOL HCL [Concomitant]
  3. COLRITE [Concomitant]
  4. GEMFIBROZIL [Concomitant]
  5. FLUTICASONE PROPIONATE [Concomitant]
  6. GLYBURIDE [Concomitant]
  7. RANITIDINE [Concomitant]
  8. JAYLN 0.5-0.4 MG GLAXOSMITHKLINE LLC [Suspect]
     Indication: PROSTATOMEGALY
     Dosage: 0.5-0.4 MG ONCE A DAY PO
     Route: 048
  9. LOSARTAN POTASSIUM [Concomitant]
  10. CARVEDILOL [Concomitant]
  11. AMLODIPINE [Concomitant]
  12. ASPIRIN [Concomitant]

REACTIONS (2)
  - INSOMNIA [None]
  - NONSPECIFIC REACTION [None]
